FAERS Safety Report 8451895-6 (Version None)
Quarter: 2012Q2

REPORT INFORMATION
  Report Type: 
  Country: None (occurrence: None)
  Receive Date: 20120620
  Receipt Date: 20120322
  Transmission Date: 20120825
  Serious: No
  Sender: FDA-Public Use
  Company Number: US-VERTEX PHARMACEUTICALS INC.-AE-2012-004210

PATIENT
  Age: 48 Year
  Sex: Male

DRUGS (6)
  1. PRILOSEC [Concomitant]
     Indication: GASTROOESOPHAGEAL REFLUX DISEASE
     Route: 048
  2. PEGASYS [Concomitant]
     Indication: HEPATITIS C
     Route: 058
     Dates: start: 20120217
  3. RIBAVIRIN [Concomitant]
     Indication: HEPATITIS C
     Route: 048
     Dates: start: 20120217, end: 20120321
  4. RIBAVIRIN [Concomitant]
     Route: 048
     Dates: start: 20120321
  5. INCIVEK [Suspect]
     Indication: HEPATITIS C
     Route: 048
     Dates: start: 20120217
  6. NORCO [Concomitant]
     Indication: BACK PAIN
     Route: 048

REACTIONS (2)
  - OEDEMA PERIPHERAL [None]
  - ANAEMIA [None]
